FAERS Safety Report 6870024-3 (Version None)
Quarter: 2010Q3

REPORT INFORMATION
  Report Type: 
  Country: None (occurrence: None)
  Receive Date: 20100722
  Receipt Date: 20081025
  Transmission Date: 20110219
  Serious: No
  Sender: FDA-Public Use
  Company Number: US-PFIZER INC-2008074572

PATIENT
  Sex: Female
  Weight: 86.18 kg

DRUGS (2)
  1. CHANTIX [Suspect]
     Indication: SMOKING CESSATION THERAPY
     Dates: start: 20080801
  2. METFORMIN [Concomitant]
     Indication: DIABETES MELLITUS

REACTIONS (4)
  - DRUG DOSE OMISSION [None]
  - NIGHTMARE [None]
  - POOR QUALITY SLEEP [None]
  - SCREAMING [None]
